FAERS Safety Report 21250295 (Version 1)
Quarter: 2022Q3

REPORT INFORMATION
  Report Type: Spontaneous
  Country: US (occurrence: US)
  Receive Date: 20220824
  Receipt Date: 20220824
  Transmission Date: 20221026
  Serious: Yes (Other)
  Sender: FDA-Public Use
  Company Number: US-PFIZER INC-202201085817

PATIENT
  Age: 77 Year
  Sex: Female
  Weight: 54.88 kg

DRUGS (4)
  1. GABAPENTIN [Suspect]
     Active Substance: GABAPENTIN
     Indication: Restless legs syndrome
     Dosage: 300 MG, 2X/DAY (AT BEDTIME AND 3O^CLOCK IN AFTERNOON)
  2. GABAPENTIN [Suspect]
     Active Substance: GABAPENTIN
     Indication: Neuropathy peripheral
  3. ALLOPURINOL [Suspect]
     Active Substance: ALLOPURINOL
     Dosage: UNK
  4. TOPIRAMATE [Suspect]
     Active Substance: TOPIRAMATE
     Dosage: UNK

REACTIONS (9)
  - Loss of consciousness [Unknown]
  - Cognitive disorder [Unknown]
  - Dizziness [Unknown]
  - Purpura [Unknown]
  - Fall [Unknown]
  - Speech disorder [Unknown]
  - Rash [Unknown]
  - Gait disturbance [Unknown]
  - Road traffic accident [Unknown]

NARRATIVE: CASE EVENT DATE: 20220501
